FAERS Safety Report 4579069-X (Version None)
Quarter: 2005Q1

REPORT INFORMATION
  Report Type: 
  Country: None (occurrence: None)
  Receive Date: 20050211
  Receipt Date: 20050119
  Transmission Date: 20050727
  Serious: Yes (Hospitalization)
  Sender: FDA-Public Use
  Company Number: JP-MERCK-0501USA03478

PATIENT
  Age: 64 Year
  Sex: Female

DRUGS (8)
  1. PRIMAXIN [Suspect]
     Indication: INFECTION PROPHYLAXIS
     Route: 042
     Dates: start: 20050118, end: 20050101
  2. DIOVAN [Concomitant]
     Indication: HYPERTENSION
     Route: 048
     Dates: start: 20041201, end: 20050118
  3. CONIEL [Concomitant]
     Indication: HYPERTENSION
     Route: 048
     Dates: start: 20041201, end: 20050118
  4. SOLANAX [Concomitant]
     Indication: ANXIETY
     Route: 048
     Dates: start: 20050118
  5. CEFMENOXIME HYDROCHLORIDE [Concomitant]
     Indication: INFECTION PROPHYLAXIS
     Route: 047
     Dates: start: 20050112, end: 20050118
  6. MYDRIN-P [Concomitant]
     Indication: MYDRIASIS
     Route: 047
     Dates: start: 20050118
  7. NEOSYNESIN [Concomitant]
     Indication: MYDRIASIS
     Route: 047
     Dates: start: 20050118
  8. SOLITA T-3 [Concomitant]
     Indication: FLUID REPLACEMENT
     Route: 042
     Dates: start: 20050118

REACTIONS (1)
  - SHOCK [None]
